FAERS Safety Report 20192718 (Version 2)
Quarter: 2022Q1

REPORT INFORMATION
  Report Type: Spontaneous
  Country: US (occurrence: None)
  Receive Date: 20211216
  Receipt Date: 20220104
  Transmission Date: 20220423
  Serious: No
  Sender: FDA-Public Use
  Company Number: 2021A872725

PATIENT
  Age: 767 Month
  Sex: Male
  Weight: 134.3 kg

DRUGS (1)
  1. BUDESONIDE\FORMOTEROL\GLYCOPYRRONIUM [Suspect]
     Active Substance: BUDESONIDE\FORMOTEROL\GLYCOPYRRONIUM
     Indication: Chronic obstructive pulmonary disease
     Dosage: 320MCG/18MCG/9.6MCG (SAMPLE INHALER) AS 2 PUFFS 12 HOURS APART
     Route: 055
     Dates: start: 20211203

REACTIONS (7)
  - Rash [Not Recovered/Not Resolved]
  - COVID-19 [Unknown]
  - Bronchitis [Not Recovered/Not Resolved]
  - Dyspnoea [Not Recovered/Not Resolved]
  - Wrong technique in device usage process [Recovered/Resolved]
  - Drug administered in wrong device [Unknown]
  - Device dispensing error [Unknown]

NARRATIVE: CASE EVENT DATE: 20211201
